FAERS Safety Report 16863911 (Version 1)
Quarter: 2019Q3

REPORT INFORMATION
  Report Type: Spontaneous
  Country: NO (occurrence: NO)
  Receive Date: 20190927
  Receipt Date: 20190927
  Transmission Date: 20191005
  Serious: Yes (Hospitalization)
  Sender: FDA-Public Use
  Company Number: NO-SHIRE-NO201931274

PATIENT

DRUGS (2)
  1. CIPRALEX [Interacting]
     Active Substance: ESCITALOPRAM OXALATE
     Indication: ANXIETY
     Route: 048
     Dates: start: 20190822, end: 20190822
  2. ELVANSE [Suspect]
     Active Substance: LISDEXAMFETAMINE DIMESYLATE
     Indication: ATTENTION DEFICIT/HYPERACTIVITY DISORDER
     Dosage: 100 MILLIGRAM (DOSAGE 60 + 40 MG)
     Route: 048

REACTIONS (4)
  - Malaise [Recovered/Resolved]
  - Visual impairment [Recovered/Resolved]
  - Dysarthria [Recovered/Resolved]
  - Fatigue [Recovered/Resolved]

NARRATIVE: CASE EVENT DATE: 20190822
